FAERS Safety Report 15796183 (Version 1)
Quarter: 2019Q1

REPORT INFORMATION
  Report Type: Spontaneous
  Country: US (occurrence: US)
  Receive Date: 20190108
  Receipt Date: 20190108
  Transmission Date: 20190417
  Serious: No
  Sender: FDA-Public Use
  Company Number: US-LUPIN PHARMACEUTICALS INC.-2018-07474

PATIENT
  Age: 48 Year
  Sex: Female
  Weight: 85.26 kg

DRUGS (5)
  1. OMEPRAZOLE. [Concomitant]
     Active Substance: OMEPRAZOLE
     Indication: PRODUCT USED FOR UNKNOWN INDICATION
     Dosage: UNK
     Route: 065
  2. SOLOSEC [Suspect]
     Active Substance: SECNIDAZOLE
     Indication: BACTERIAL VAGINOSIS
     Dosage: 1 DF, SINGLE
     Route: 048
     Dates: start: 20180711
  3. ZYRTEC [Concomitant]
     Active Substance: CETIRIZINE HYDROCHLORIDE
     Indication: PRODUCT USED FOR UNKNOWN INDICATION
     Dosage: UNK
     Route: 065
  4. SOLOSEC [Suspect]
     Active Substance: SECNIDAZOLE
     Dosage: 1 DF, SINGLE
     Route: 048
     Dates: start: 20180811
  5. SOLOSEC [Suspect]
     Active Substance: SECNIDAZOLE
     Dosage: 1 DF, SINGLE
     Route: 048
     Dates: start: 20180911

REACTIONS (4)
  - Drug ineffective [Unknown]
  - Vaginal discharge [Not Recovered/Not Resolved]
  - Bacterial vaginosis [Unknown]
  - Vulvovaginal pruritus [Not Recovered/Not Resolved]

NARRATIVE: CASE EVENT DATE: 20180711
